FAERS Safety Report 9347462 (Version 2)
Quarter: 2013Q2

REPORT INFORMATION
  Report Type: Spontaneous
  Country: FR (occurrence: FR)
  Receive Date: 20130614
  Receipt Date: 20130617
  Transmission Date: 20140414
  Serious: Yes (Hospitalization)
  Sender: FDA-Public Use
  Company Number: FR-B.I. PHARMACEUTICALS,INC./RIDGEFIELD-2013-FF-01643FF

PATIENT
  Age: 93 Year
  Sex: Male

DRUGS (8)
  1. PRADAXA [Suspect]
     Indication: ATRIAL FIBRILLATION
     Dosage: 220 MG
     Route: 048
  2. SEROPLEX [Concomitant]
  3. INIPOMP [Concomitant]
  4. LEXOMIL [Concomitant]
  5. LEVOTHYROX [Concomitant]
  6. DUROGESIC [Concomitant]
  7. AMIODARONE [Concomitant]
  8. CALCIUM [Concomitant]

REACTIONS (2)
  - Thrombocytopenia [Not Recovered/Not Resolved]
  - General physical health deterioration [Not Recovered/Not Resolved]
